FAERS Safety Report 6630544-3 (Version None)
Quarter: 2010Q1

REPORT INFORMATION
  Report Type: 
  Country: None (occurrence: None)
  Receive Date: 20100311
  Receipt Date: 20090520
  Transmission Date: 20100710
  Serious: Yes (Hospitalization)
  Sender: FDA-Public Use
  Company Number: US-BIOGENIDEC-2006BI018713

PATIENT
  Age: 50 Year
  Sex: Female

DRUGS (4)
  1. AVONEX [Suspect]
     Indication: MULTIPLE SCLEROSIS
     Route: 030
     Dates: start: 20030825, end: 20061219
  2. AVONEX [Suspect]
     Route: 030
     Dates: start: 20030617, end: 20030825
  3. TRAMADOL HCL [Concomitant]
     Indication: NERVOUS SYSTEM DISORDER
  4. TRAMADOL HCL [Concomitant]
     Indication: NEURALGIA

REACTIONS (1)
  - MULTIPLE SCLEROSIS RELAPSE [None]
